FAERS Safety Report 5604619-1 (Version None)
Quarter: 2008Q1

REPORT INFORMATION
  Report Type: 
  Country: None (occurrence: None)
  Receive Date: 20080128
  Receipt Date: 20080117
  Transmission Date: 20080703
  Serious: Yes (Other)
  Sender: FDA-Public Use
  Company Number: US-JNJFOC-20080104617

PATIENT
  Age: 74 Year
  Sex: Female
  Weight: 72.58 kg

DRUGS (4)
  1. TYLENOL (CAPLET) [Suspect]
  2. TYLENOL (CAPLET) [Suspect]
     Indication: PAIN
  3. BONIVA [Concomitant]
  4. REQUIP [Concomitant]

REACTIONS (1)
  - FOREIGN BODY TRAUMA [None]
